FAERS Safety Report 4607003-2 (Version None)
Quarter: 2005Q1

REPORT INFORMATION
  Report Type: 
  Country: None (occurrence: None)
  Receive Date: 20050309
  Receipt Date: 20050224
  Transmission Date: 20050727
  Serious: Yes (Hospitalization)
  Sender: FDA-Public Use
  Company Number: HQWYE607725FEB05

PATIENT
  Age: 81 Year
  Sex: Female
  Weight: 82.63 kg

DRUGS (5)
  1. INDERAL LA [Suspect]
     Indication: HYPERTENSION
     Dosage: SEE IMAGE
     Route: 048
     Dates: start: 20040101
  2. ALTACE [Concomitant]
  3. PREVACID [Concomitant]
  4. RANITIDINE [Concomitant]
  5. VITAMINS (VITAMINS) [Concomitant]

REACTIONS (3)
  - BLOOD PRESSURE INADEQUATELY CONTROLLED [None]
  - DRUG INEFFECTIVE [None]
  - ELECTROLYTE IMBALANCE [None]
